FAERS Safety Report 6208487-9 (Version None)
Quarter: 2009Q2

REPORT INFORMATION
  Report Type: 
  Country: None (occurrence: None)
  Receive Date: 20090529
  Receipt Date: 20090422
  Transmission Date: 20091009
  Serious: Yes (Life-Threatening)
  Sender: FDA-Public Use
  Company Number: TW-PFIZER INC-2008050337

PATIENT
  Age: 73 Year

DRUGS (33)
  1. ANIDULAFUNGIN [Suspect]
     Indication: SYSTEMIC CANDIDA
     Dosage: 100 MG, 1X/DAY
     Route: 042
     Dates: start: 20080527
  2. ISONIAZID [Concomitant]
     Dosage: 100 MG, UNK
     Route: 048
     Dates: start: 20080530, end: 20080629
  3. RIFAMPIN [Concomitant]
     Dosage: 150 MG, UNK
     Route: 048
     Dates: start: 20080530, end: 20080629
  4. ETHAMBUTOL DIHYDROCHLORIDE [Concomitant]
     Dosage: 400 MG, UNK
     Route: 048
     Dates: start: 20080530, end: 20080629
  5. PYRAZINAMIDE [Concomitant]
     Dosage: 500 MG, UNK
     Route: 048
     Dates: start: 20080530, end: 20080629
  6. PYRIDOXINE HYDROCHLORIDE [Concomitant]
     Route: 048
     Dates: start: 20080530, end: 20080701
  7. INVANZ [Concomitant]
     Route: 042
     Dates: start: 20080609, end: 20080620
  8. POTASSIUM CHLORIDE [Concomitant]
     Dosage: UNK
     Route: 048
     Dates: start: 20080618, end: 20080701
  9. HUMULIN R [Concomitant]
     Dosage: UNK
     Route: 058
     Dates: start: 20080517, end: 20080620
  10. CRAVIT [Concomitant]
     Route: 042
     Dates: start: 20080612, end: 20080626
  11. MESNA [Concomitant]
     Route: 055
     Dates: start: 20080529, end: 20080627
  12. ACETAMINOPHEN [Concomitant]
     Route: 048
     Dates: start: 20080602, end: 20080701
  13. FAMOTIDINE [Concomitant]
     Route: 048
     Dates: start: 20080622, end: 20080628
  14. OMEPRAZOLE [Concomitant]
     Dosage: UNK
     Route: 042
     Dates: start: 20080517, end: 20080612
  15. BISACODYL [Concomitant]
     Dosage: UNK
     Route: 054
     Dates: start: 20080602, end: 20080622
  16. DEXTROSE ELECTROLYTE DM 3AG [Concomitant]
     Dosage: UNK
     Route: 042
     Dates: start: 20080602, end: 20080604
  17. METOCLOPRAMIDE HYDROCHLORIDE [Concomitant]
     Dosage: UNK
     Route: 042
     Dates: start: 20080516, end: 20080618
  18. FAT EMULSIONS [Concomitant]
     Dosage: UNK
     Dates: start: 20080517, end: 20080619
  19. SALBUTAMOL SULFATE [Concomitant]
     Dosage: UNK
     Dates: start: 20080517
  20. STREPTOMYCIN SULFATE [Concomitant]
     Dosage: UNK
     Dates: start: 20080517, end: 20080624
  21. LORAZEPAM [Concomitant]
     Dosage: UNK
     Dates: start: 20080518, end: 20080623
  22. INSULIN ISOPHANE BW [Concomitant]
     Dosage: UNK
     Dates: start: 20080523, end: 20080605
  23. POTASSIUM CHLORIDE [Concomitant]
  24. DICLOFENAC SODIUM [Concomitant]
  25. LYSINE ACETATE [Concomitant]
  26. TIENAM [Concomitant]
  27. FUROSEMIDE [Concomitant]
  28. MOXIFLOXACIN [Concomitant]
  29. VANCOMYCIN HYDROCHLORIDE [Concomitant]
  30. ALBUMIN HUMAN [Concomitant]
  31. ACETAMINOPHEN [Concomitant]
  32. RIFAMYCIN SODIUM [Concomitant]
  33. NUTRIFLEX ^BRAUN^ [Concomitant]
     Dosage: UNK
     Route: 042
     Dates: start: 20080517, end: 20080602

REACTIONS (1)
  - RESPIRATORY FAILURE [None]
